FAERS Safety Report 4424648-3 (Version None)
Quarter: 2004Q3

REPORT INFORMATION
  Report Type: 
  Country: None (occurrence: None)
  Receive Date: 20040809
  Receipt Date: 20040723
  Transmission Date: 20050211
  Serious: Yes (Hospitalization)
  Sender: FDA-Public Use
  Company Number: 238292

PATIENT
  Age: 59 Year
  Sex: Male

DRUGS (2)
  1. NOVONORM (REPAGLINIDE) TABLET, 2.0MG [Suspect]
     Indication: DIABETES MELLITUS NON-INSULIN-DEPENDENT
     Dosage: 4 MG, QD, PER ORAL
     Route: 048
     Dates: start: 20030701, end: 20040115
  2. METHYLPREDNISOLONE [Concomitant]

REACTIONS (1)
  - HEPATITIS CHOLESTATIC [None]
